FAERS Safety Report 7204535-8 (Version None)
Quarter: 2010Q4

REPORT INFORMATION
  Report Type: 
  Country: None (occurrence: None)
  Receive Date: 20101230
  Receipt Date: 20101217
  Transmission Date: 20110411
  Serious: Yes (Other)
  Sender: FDA-Public Use
  Company Number: PHHY2010DE87036

PATIENT
  Sex: Female
  Weight: 45 kg

DRUGS (3)
  1. STALEVO [Suspect]
     Indication: PARKINSON'S DISEASE
     Dosage: 75 MG, TID
     Route: 048
     Dates: start: 20101107, end: 20101109
  2. LYRICA [Concomitant]
     Dosage: 225 MG, QD
     Dates: start: 20100121
  3. TRAZODONE [Concomitant]
     Dosage: 50 MG, QD
     Dates: start: 20080716

REACTIONS (6)
  - ADJUSTMENT DISORDER [None]
  - FEAR [None]
  - HYPOPHAGIA [None]
  - MALAISE [None]
  - TREATMENT NONCOMPLIANCE [None]
  - WALKING DISABILITY [None]
